FAERS Safety Report 5748672-3 (Version None)
Quarter: 2008Q2

REPORT INFORMATION
  Report Type: 
  Country: None (occurrence: None)
  Receive Date: 20080521
  Receipt Date: 20080507
  Transmission Date: 20081010
  Serious: Yes (Other)
  Sender: FDA-Public Use
  Company Number: 167-20785-08050878

PATIENT
  Age: 60 Year

DRUGS (7)
  1. THALIDOMIDE [Suspect]
     Indication: MULTIPLE MYELOMA
     Dosage: 100MG-200MG DAILY DAYS 1-21,  ORAL
     Route: 048
     Dates: start: 20041001, end: 20070501
  2. IDARUBICIN HCL [Concomitant]
  3. DEXAMETHASONE TAB [Concomitant]
  4. ETOPOSIDE [Concomitant]
  5. ACYCLOVIR [Concomitant]
  6. BACTRIM [Concomitant]
  7. LANSOPRAZOLE [Concomitant]

REACTIONS (1)
  - NEPHROPATHY TOXIC [None]
